FAERS Safety Report 21289686 (Version 1)
Quarter: 2022Q3

REPORT INFORMATION
  Report Type: Spontaneous
  Country: IT (occurrence: IT)
  Receive Date: 20220902
  Receipt Date: 20220902
  Transmission Date: 20221027
  Serious: Yes (Hospitalization, Other)
  Sender: FDA-Public Use
  Company Number: None

PATIENT
  Age: 80 Year
  Sex: Male

DRUGS (2)
  1. VEKLURY [Suspect]
     Active Substance: REMDESIVIR
     Indication: COVID-19
     Dosage: 200 MG IL PIRMO GIORNO, POI SOSPESO
     Route: 042
     Dates: start: 20220811, end: 20220812
  2. FIDATO [Concomitant]
     Active Substance: CEFTRIAXONE SODIUM
     Dosage: 2 G AL D?
     Route: 042
     Dates: start: 20220811, end: 20220818

REACTIONS (1)
  - Hepatitis [Recovered/Resolved]

NARRATIVE: CASE EVENT DATE: 20220812
